FAERS Safety Report 9483836 (Version 17)
Quarter: 2016Q4

REPORT INFORMATION
  Report Type: Report from Study
  Country: CA (occurrence: CA)
  Receive Date: 20130828
  Receipt Date: 20161013
  Transmission Date: 20170207
  Serious: Yes (Hospitalization, Other)
  Sender: FDA-Public Use
  Company Number: PHHY2013CA092812

PATIENT
  Age: 66 Year
  Sex: Female

DRUGS (5)
  1. ARIMIDEX [Concomitant]
     Active Substance: ANASTROZOLE
     Indication: PRODUCT USED FOR UNKNOWN INDICATION
     Dosage: UNK
     Route: 065
  2. VITAMIN D [Concomitant]
     Active Substance: CHOLECALCIFEROL
     Indication: PRODUCT USED FOR UNKNOWN INDICATION
     Dosage: UNK
     Route: 065
  3. TASIGNA [Suspect]
     Active Substance: NILOTINIB
     Indication: CHRONIC MYELOID LEUKAEMIA
     Dosage: 300 MG, BID
     Route: 048
     Dates: start: 201308, end: 201607
  4. CALCIUM [Concomitant]
     Active Substance: CALCIUM
     Indication: PRODUCT USED FOR UNKNOWN INDICATION
     Dosage: UNK
     Route: 065
  5. ZYLOPRIM [Concomitant]
     Active Substance: ALLOPURINOL
     Indication: PRODUCT USED FOR UNKNOWN INDICATION
     Dosage: UNK
     Route: 065

REACTIONS (39)
  - Pulmonary oedema [Unknown]
  - Blood cholesterol abnormal [Recovering/Resolving]
  - Angina unstable [Recovering/Resolving]
  - Arterial occlusive disease [Recovering/Resolving]
  - Sleep disorder [Unknown]
  - Anogenital warts [Unknown]
  - Pleural effusion [Unknown]
  - Myalgia [Recovering/Resolving]
  - Alopecia [Recovering/Resolving]
  - Chest discomfort [Unknown]
  - Blood iron increased [Unknown]
  - Hepatic enzyme increased [Unknown]
  - Pruritus generalised [Recovering/Resolving]
  - Chest pain [Unknown]
  - Aortitis [Unknown]
  - Electrocardiogram repolarisation abnormality [Unknown]
  - Arteriosclerosis [Unknown]
  - Photosensitivity reaction [Unknown]
  - Rash [Recovering/Resolving]
  - Skin papilloma [Unknown]
  - Vomiting [Unknown]
  - Dyspnoea [Unknown]
  - Procedural pain [Recovering/Resolving]
  - Pericarditis [Unknown]
  - Toxicity to various agents [Unknown]
  - Hepatic enzyme abnormal [Unknown]
  - Nausea [Recovered/Resolved]
  - Arthralgia [Recovering/Resolving]
  - Depression [Recovered/Resolved]
  - Cardiac disorder [Unknown]
  - Nausea [Unknown]
  - Myocardial ischaemia [Recovering/Resolving]
  - Hair texture abnormal [Unknown]
  - Diarrhoea [Unknown]
  - Myocardial oedema [Unknown]
  - Pericardial effusion [Unknown]
  - Coronary artery disease [Unknown]
  - Fatigue [Not Recovered/Not Resolved]
  - Abdominal pain [Unknown]

NARRATIVE: CASE EVENT DATE: 2013
